FAERS Safety Report 7034147-0 (Version None)
Quarter: 2010Q4

REPORT INFORMATION
  Report Type: 
  Country: None (occurrence: None)
  Receive Date: 20101008
  Receipt Date: 20100927
  Transmission Date: 20110411
  Serious: Yes (Other)
  Sender: FDA-Public Use
  Company Number: GXKR2010AR10894

PATIENT
  Sex: Female
  Weight: 35 kg

DRUGS (2)
  1. LEVETIRACETAM (NGX) [Suspect]
     Indication: PARTIAL SEIZURES
     Dosage: 1500 MG/DAY
     Route: 065
  2. LAMOTRIGINE [Concomitant]
     Indication: PARTIAL SEIZURES
     Route: 065

REACTIONS (6)
  - ABNORMAL BEHAVIOUR [None]
  - CONVULSION [None]
  - ELECTROENCEPHALOGRAM ABNORMAL [None]
  - GAIT DISTURBANCE [None]
  - MYOCLONUS [None]
  - PARTIAL SEIZURES [None]
